FAERS Safety Report 4738577-9 (Version None)
Quarter: 2005Q3

REPORT INFORMATION
  Report Type: 
  Country: None (occurrence: None)
  Receive Date: 20050809
  Receipt Date: 20050729
  Transmission Date: 20060218
  Serious: Yes (Death, Other)
  Sender: FDA-Public Use
  Company Number: NL-BRISTOL-MYERS SQUIBB COMPANY-13060421

PATIENT

DRUGS (3)
  1. CISPLATIN [Suspect]
  2. PACLITAXEL [Suspect]
  3. EPIRUBICIN [Suspect]

REACTIONS (2)
  - NEUTROPENIA [None]
  - SEPTIC SHOCK [None]
